FAERS Safety Report 23771181 (Version 1)
Quarter: 2024Q2

REPORT INFORMATION
  Report Type: Spontaneous
  Country: US (occurrence: US)
  Receive Date: 20240423
  Receipt Date: 20240423
  Transmission Date: 20240716
  Serious: No
  Sender: FDA-Public Use
  Company Number: US-AUROBINDO-AUR-APL-2023-069286

PATIENT
  Sex: Female

DRUGS (1)
  1. SPIRONOLACTONE [Suspect]
     Active Substance: SPIRONOLACTONE
     Indication: Blood pressure measurement
     Dosage: 25 MILLIGRAM, ONCE A DAY
     Route: 048

REACTIONS (7)
  - Somnolence [Unknown]
  - Intentional underdose [Unknown]
  - Intentional product use issue [Unknown]
  - Product commingling [Unknown]
  - Product dispensing error [Unknown]
  - Product packaging issue [Unknown]
  - Product size issue [Unknown]

NARRATIVE: CASE EVENT DATE: 20231110
